FAERS Safety Report 8422181-5 (Version None)
Quarter: 2012Q2

REPORT INFORMATION
  Report Type: 
  Country: None (occurrence: None)
  Receive Date: 20120608
  Receipt Date: 20120604
  Transmission Date: 20120825
  Serious: Yes (Other)
  Sender: FDA-Public Use
  Company Number: CN-ROCHE-1075615

PATIENT

DRUGS (5)
  1. CELLCEPT [Suspect]
     Indication: IMMUNOSUPPRESSION
     Route: 048
  2. METHYLPREDNISOLONE [Suspect]
     Indication: IMMUNOSUPPRESSION
     Dosage: THE INITIAL DOSE OF INTRAVENOUS BOLUS INJECTION OF METHYLPREDNISOLONE WAS 240 MG,WHICH WAS REDUCED B
     Route: 040
  3. CYCLOSPORINE [Suspect]
     Indication: IMMUNOSUPPRESSION
  4. TACROLIMUS [Suspect]
     Indication: IMMUNOSUPPRESSION
     Dosage: THE INITIAL DOSE OF FK506 WAS 0.05-0.1 MG/KG/D, ADMINISTERED IN 2 DOSES. AFTER THAT, THE DOSE WAS AD
     Route: 048
  5. METHYLPREDNISOLONE [Suspect]
     Dosage: 48 MG, ORAL, WHICH WAS REDUCED BY 8MG EVERY 3 DAYS, TO 8 MG AND MAINTAINED.
     Route: 048

REACTIONS (6)
  - DELIRIUM [None]
  - COGNITIVE DISORDER [None]
  - SLEEP DISORDER [None]
  - MANIA [None]
  - DEPRESSION [None]
  - ANXIETY [None]
